FAERS Safety Report 4312790-7 (Version None)
Quarter: 2004Q1

REPORT INFORMATION
  Report Type: 
  Country: None (occurrence: None)
  Receive Date: 20040304
  Receipt Date: 20040225
  Transmission Date: 20041129
  Serious: Yes (Hospitalization)
  Sender: FDA-Public Use
  Company Number: 2004193990JP

PATIENT
  Age: 53 Year
  Sex: Female

DRUGS (12)
  1. CAMPTOSAR [Suspect]
     Indication: COLORECTAL CANCER
     Dosage: 140 MG, CYCLIC, IV DRIP
     Route: 041
     Dates: start: 20031222, end: 20031222
  2. FLUOROURACIL [Suspect]
     Indication: COLORECTAL CANCER
     Dosage: 750 MG, CYCLIC, IV DRIP
     Route: 041
     Dates: start: 20031222, end: 20031222
  3. LEUCOVORIN CALCIUM [Suspect]
     Indication: COLORECTAL CANCER
     Dosage: 350 MG, CYCLIC, IV DRIP
     Route: 041
     Dates: start: 20031222, end: 20031222
  4. FESIN (SACCHARATED IRON OXIDE) [Concomitant]
  5. SODIUM CHLORIDE INJ [Concomitant]
  6. ALTAT (ROXATIDINE ACETATE HYDROCHLORIDE) [Concomitant]
  7. NEOLAMIN MULTI (VITAMINS NOS) [Concomitant]
  8. MINERALS NOS [Concomitant]
  9. AMINO ACID INJ [Concomitant]
  10. TIENAM (IMIPENEM, CILASTATIN) [Concomitant]
  11. CLINDAMYCIN HCL [Concomitant]
  12. FRUCTLACT [Concomitant]

REACTIONS (3)
  - DRUG ERUPTION [None]
  - PRURITUS [None]
  - VOMITING [None]
